FAERS Safety Report 5672009-1 (Version None)
Quarter: 2008Q1

REPORT INFORMATION
  Report Type: 
  Country: None (occurrence: None)
  Receive Date: 20080314
  Receipt Date: 20080227
  Transmission Date: 20080703
  Serious: Yes (Other)
  Sender: FDA-Public Use
  Company Number: 2008EU000445

PATIENT
  Age: 40 Year
  Sex: Female
  Weight: 57.2 kg

DRUGS (1)
  1. PROTOPIC [Suspect]
     Indication: CONNECTIVE TISSUE DISORDER
     Dosage: %, UID/QD, TOPICAL
     Route: 061
     Dates: start: 20080101, end: 20080114

REACTIONS (5)
  - DRUG WITHDRAWAL SYNDROME [None]
  - EYE SWELLING [None]
  - INFLAMMATION [None]
  - RASH [None]
  - SKIN BURNING SENSATION [None]
